FAERS Safety Report 24103237 (Version 1)
Quarter: 2024Q3

REPORT INFORMATION
  Report Type: Report from Study
  Country: US (occurrence: US)
  Receive Date: 20240717
  Receipt Date: 20240717
  Transmission Date: 20241017
  Serious: No
  Sender: ROCHE
  Company Number: US-ROCHE-10000028076

PATIENT
  Age: 34 Year
  Sex: Female

DRUGS (5)
  1. OCREVUS [Suspect]
     Active Substance: OCRELIZUMAB
     Indication: Relapsing-remitting multiple sclerosis
     Route: 065
  2. CYANOCOBALAMIN [Concomitant]
     Active Substance: CYANOCOBALAMIN
  3. VITAMIN D2 [Concomitant]
     Active Substance: ERGOCALCIFEROL
  4. VUMERITY [Concomitant]
     Active Substance: DIROXIMEL FUMARATE
  5. CHOLECALCIFEROL [Concomitant]
     Active Substance: CHOLECALCIFEROL

REACTIONS (4)
  - Vitamin D deficiency [Unknown]
  - Demyelination [Unknown]
  - Neoplasm [Unknown]
  - JC polyomavirus test positive [Unknown]
